FAERS Safety Report 8164065-6 (Version None)
Quarter: 2012Q1

REPORT INFORMATION
  Report Type: 
  Country: None (occurrence: None)
  Receive Date: 20120224
  Receipt Date: 20120222
  Transmission Date: 20120608
  Serious: Yes (Life-Threatening, Hospitalization, Other)
  Sender: FDA-Public Use
  Company Number: CA-B.I. PHARMACEUTICALS,INC./RIDGEFIELD-2012-CN-00397CN

PATIENT
  Age: 81 Year
  Sex: Male

DRUGS (11)
  1. DIGOXIN [Concomitant]
     Route: 065
  2. DIAZEPAM [Concomitant]
     Route: 065
  3. FUROSEMIDE [Concomitant]
     Route: 065
  4. SYMBICORT [Concomitant]
     Route: 065
  5. PREDNISONE TAB [Concomitant]
     Route: 065
  6. IPRATROPIUM BROMIDE [Concomitant]
     Route: 065
  7. XELODA [Concomitant]
     Route: 065
  8. WARFARIN SODIUM [Suspect]
     Dosage: 5 MG
     Route: 048
  9. DILTIAZEM HCL [Concomitant]
     Route: 065
  10. PRADAXA [Suspect]
     Dosage: 220 MG
     Route: 048
  11. WARFARIN SODIUM [Concomitant]
     Route: 065

REACTIONS (3)
  - HYPOVOLAEMIA [None]
  - LOWER GASTROINTESTINAL HAEMORRHAGE [None]
  - ORTHOSTATIC HYPOTENSION [None]
